FAERS Safety Report 25585313 (Version 3)
Quarter: 2025Q4

REPORT INFORMATION
  Report Type: Spontaneous
  Country: US (occurrence: US)
  Receive Date: 20250721
  Receipt Date: 20251103
  Transmission Date: 20260117
  Serious: Yes (Other)
  Sender: BAYER HEALTHCARE PHARMACEUTICALS INC.
  Company Number: US-BAYER-2025A094662

PATIENT
  Sex: Female

DRUGS (3)
  1. KOVALTRY [Suspect]
     Active Substance: ANTIHEMOPHILIC FACTOR, HUMAN RECOMBINANT
     Indication: Factor VIII deficiency
     Dosage: KOVALTRY 2000 UNITS/ INFUSE ~ 2000 UNITS  (+/-10%)  INTRAVENOUSLY  DAILY AS NEEDED  FOR BREAKTHROUGH
     Route: 042
     Dates: start: 201702
  2. KOVALTRY [Suspect]
     Active Substance: ANTIHEMOPHILIC FACTOR, HUMAN RECOMBINANT
     Indication: Factor VIII deficiency
     Dosage: USED 3  DOSES TO TREAT BLEED
  3. KOVALTRY [Suspect]
     Active Substance: ANTIHEMOPHILIC FACTOR, HUMAN RECOMBINANT
     Indication: Factor VIII deficiency
     Dosage: KOVALTRY 2000 UNITS/ INFUSE ~ 2000 UNITS  (+/-10%)  INTRAVENOUSLY  DAILY AS NEEDED  FOR BREAKTHROUGH
     Route: 042
     Dates: start: 201702

REACTIONS (3)
  - Haemorrhage [Unknown]
  - Haemarthrosis [None]
  - Haemorrhage [None]
